FAERS Safety Report 10473826 (Version 4)
Quarter: 2014Q4

REPORT INFORMATION
  Report Type: Report from Study
  Country: US (occurrence: US)
  Receive Date: 20140924
  Receipt Date: 20141028
  Transmission Date: 20150528
  Serious: Yes (Other)
  Sender: FDA-Public Use
  Company Number: PHEH2014US018471

PATIENT
  Age: 71 Year
  Sex: Female

DRUGS (3)
  1. GLEEVEC [Suspect]
     Active Substance: IMATINIB MESYLATE
     Dosage: 300 MG,QD
     Route: 048
  2. GLEEVEC [Suspect]
     Active Substance: IMATINIB MESYLATE
     Dosage: 400 MG (CUTTING IN HALF AND TAKING 200 MG AS HER DOSE DAILY)
     Route: 048
  3. GLEEVEC [Suspect]
     Active Substance: IMATINIB MESYLATE
     Indication: CHRONIC MYELOID LEUKAEMIA (IN REMISSION)
     Dosage: 200 MG, QD
     Route: 048

REACTIONS (7)
  - Back pain [Unknown]
  - Arthralgia [Unknown]
  - Oral pain [Unknown]
  - Wrong technique in drug usage process [Unknown]
  - Diarrhoea [Unknown]
  - Fall [Unknown]
  - Expired product administered [Unknown]

NARRATIVE: CASE EVENT DATE: 20140922
